FAERS Safety Report 8204713-5 (Version None)
Quarter: 2012Q1

REPORT INFORMATION
  Report Type: 
  Country: None (occurrence: None)
  Receive Date: 20120313
  Receipt Date: 20120305
  Transmission Date: 20120608
  Serious: Yes (Other)
  Sender: FDA-Public Use
  Company Number: US-JNJFOC-20120208933

PATIENT
  Sex: Male
  Weight: 158.76 kg

DRUGS (6)
  1. INDOMETHACIN [Concomitant]
     Indication: GOUT
  2. ASPIRIN [Concomitant]
     Indication: CORONARY ARTERIAL STENT INSERTION
     Dates: start: 20040101
  3. LISINOPRIL [Concomitant]
     Indication: BLOOD PRESSURE
  4. ZIAC [Concomitant]
     Indication: BLOOD PRESSURE
     Dosage: 10/6.25MG DAILY
     Route: 048
  5. STELARA [Suspect]
     Indication: PSORIASIS
     Route: 058
     Dates: start: 20100101
  6. ALLOPURINOL [Concomitant]
     Indication: GOUT

REACTIONS (8)
  - HEPATIC ENZYME INCREASED [None]
  - PRODUCT QUALITY ISSUE [None]
  - THERAPEUTIC RESPONSE DECREASED [None]
  - FATIGUE [None]
  - DIZZINESS [None]
  - DYSPEPSIA [None]
  - SLEEP APNOEA SYNDROME [None]
  - NAUSEA [None]
